FAERS Safety Report 5313598-6 (Version None)
Quarter: 2007Q2

REPORT INFORMATION
  Report Type: 
  Country: None (occurrence: None)
  Receive Date: 20070501
  Receipt Date: 20070425
  Transmission Date: 20071010
  Serious: Yes (Other)
  Sender: FDA-Public Use
  Company Number: US-JNJFOC-20070406040

PATIENT
  Sex: Female
  Weight: 74.39 kg

DRUGS (5)
  1. FENTANYL TRANSDERMAL SYSTEM [Suspect]
     Indication: PAIN
     Route: 062
  2. KLONOPIN [Concomitant]
     Indication: ANXIETY
     Route: 048
  3. KLONOPIN [Concomitant]
     Indication: SLEEP DISORDER
     Route: 048
  4. LYRICA [Concomitant]
     Indication: PAIN
     Route: 048
  5. ARMOUR [Concomitant]
     Indication: THYROID DISORDER
     Route: 048

REACTIONS (3)
  - DRUG INEFFECTIVE [None]
  - THYROID DISORDER [None]
  - WRONG TECHNIQUE IN DRUG USAGE PROCESS [None]
